FAERS Safety Report 6656100-9 (Version None)
Quarter: 2010Q1

REPORT INFORMATION
  Report Type: 
  Country: None (occurrence: None)
  Receive Date: 20100329
  Receipt Date: 20100322
  Transmission Date: 20100710
  Serious: Yes (Hospitalization)
  Sender: FDA-Public Use
  Company Number: B0638346A

PATIENT
  Age: 28 Year
  Sex: Female

DRUGS (2)
  1. PAROXETINE HYDROCHLORIDE [Suspect]
     Dosage: 20MG PER DAY
     Dates: start: 19970312
  2. PARACETAMOL [Suspect]

REACTIONS (8)
  - AGGRESSION [None]
  - CONFABULATION [None]
  - DEPRESSED MOOD [None]
  - DRUG WITHDRAWAL SYNDROME [None]
  - LOSS OF LIBIDO [None]
  - OVERDOSE [None]
  - SUICIDE ATTEMPT [None]
  - TEARFULNESS [None]
